FAERS Safety Report 5369950-6 (Version None)
Quarter: 2007Q2

REPORT INFORMATION
  Report Type: 
  Country: None (occurrence: None)
  Receive Date: 20070621
  Receipt Date: 20070522
  Transmission Date: 20071010
  Serious: No
  Sender: FDA-Public Use
  Company Number: BE-GUERBET-20070001

PATIENT
  Age: 70 Year
  Sex: Female
  Weight: 52 kg

DRUGS (6)
  1. DOTAREM          /  MEGLUMINE GADOTERATE [Suspect]
     Indication: NUCLEAR MAGNETIC RESONANCE IMAGING
     Dosage: 15, ML (S), 1,  TOTAL; INTRAVENOUS (NOT OTHERWISE SPECIFIED)
     Route: 042
     Dates: start: 20061226, end: 20061226
  2. PRILOSEC [Concomitant]
  3. PIRACETAM      /  PIRACETAM [Concomitant]
  4. SPIRONOLACTONE [Concomitant]
  5. ESTRADIOL [Concomitant]
  6. CARDIOSPIRINE          /   ACETYLSALICYLIC ACID [Concomitant]

REACTIONS (3)
  - BURNING SENSATION [None]
  - MYALGIA [None]
  - TINNITUS [None]
